FAERS Safety Report 8602435-X (Version None)
Quarter: 2012Q3

REPORT INFORMATION
  Report Type: 
  Country: None (occurrence: None)
  Receive Date: 20120817
  Receipt Date: 19931012
  Transmission Date: 20120928
  Serious: Yes (Other)
  Sender: FDA-Public Use
  Company Number: US-ROCHE-1099733

PATIENT
  Sex: Male

DRUGS (1)
  1. ACTIVASE [Suspect]
     Indication: ACUTE MYOCARDIAL INFARCTION
     Dosage: 10 MG IVP TO START FOLLOWE BY 50 MG PER HOUR
     Route: 042

REACTIONS (1)
  - VISION BLURRED [None]
